FAERS Safety Report 11847546 (Version 1)
Quarter: 2015Q4

REPORT INFORMATION
  Report Type: Spontaneous
  Country: JP (occurrence: JP)
  Receive Date: 20151217
  Receipt Date: 20151217
  Transmission Date: 20160305
  Serious: Yes (Hospitalization)
  Sender: FDA-Public Use
  Company Number: PHJP1900JP001478

PATIENT
  Age: 2 Year
  Sex: Male

DRUGS (4)
  1. VOLTAREN [Suspect]
     Active Substance: DICLOFENAC SODIUM
     Indication: ASTHMA
     Dosage: 12.5 MG, QD
     Route: 065
     Dates: start: 19831210
  2. VOLTAREN [Suspect]
     Active Substance: DICLOFENAC SODIUM
     Indication: PYREXIA
  3. NEOPHYLLIN [Concomitant]
     Indication: PRODUCT USED FOR UNKNOWN INDICATION
     Dosage: 240 MG, QD
     Route: 065
     Dates: start: 19831210, end: 19831212
  4. AMPICILLIN [Concomitant]
     Active Substance: AMPICILLIN
     Indication: PRODUCT USED FOR UNKNOWN INDICATION
     Dosage: 2000 MG, QD
     Route: 065
     Dates: start: 19831210, end: 19831212

REACTIONS (7)
  - Eosinophilia [Recovering/Resolving]
  - Neutrophil percentage decreased [Recovered/Resolved]
  - White blood cell count increased [Recovered/Resolved]
  - Band neutrophil percentage increased [Not Recovered/Not Resolved]
  - Lymphocyte percentage decreased [Not Recovered/Not Resolved]
  - Monocyte percentage decreased [Unknown]
  - Blood urea decreased [Unknown]
